FAERS Safety Report 9441959 (Version 1)
Quarter: 2013Q3

REPORT INFORMATION
  Report Type: Spontaneous
  Country: RU (occurrence: RU)
  Receive Date: 20130806
  Receipt Date: 20130806
  Transmission Date: 20140515
  Serious: Yes (Death)
  Sender: FDA-Public Use
  Company Number: RU-ROCHE-1256809

PATIENT
  Age: 37 Year
  Sex: Female

DRUGS (2)
  1. MABTHERA [Suspect]
     Indication: GRANULOMATOSIS WITH POLYANGIITIS
     Dosage: SINGLE DOSING
     Route: 042
     Dates: start: 201304
  2. MYCOPHENOLATE MOFETIL [Concomitant]
     Route: 065

REACTIONS (3)
  - Agranulocytosis [Fatal]
  - Disease progression [Fatal]
  - Pneumonia [Fatal]
